FAERS Safety Report 15428585 (Version 1)
Quarter: 2018Q3

REPORT INFORMATION
  Report Type: Spontaneous
  Country: US (occurrence: US)
  Receive Date: 20180919
  Receipt Date: 20180919
  Transmission Date: 20181010
  Serious: No
  Sender: FDA-Public Use
  Company Number: None

PATIENT
  Age: 31 Year
  Sex: Male

DRUGS (1)
  1. TRUVADA [Suspect]
     Active Substance: EMTRICITABINE\TENOFOVIR DISOPROXIL FUMARATE
     Route: 048
     Dates: start: 201608

REACTIONS (5)
  - Anxiety [None]
  - Chills [None]
  - Headache [None]
  - Arthralgia [None]
  - Diarrhoea [None]

NARRATIVE: CASE EVENT DATE: 20180917
